FAERS Safety Report 7342136-1 (Version None)
Quarter: 2011Q1

REPORT INFORMATION
  Report Type: 
  Country: None (occurrence: None)
  Receive Date: 20110309
  Receipt Date: 20110301
  Transmission Date: 20110831
  Serious: Yes (Hospitalization)
  Sender: FDA-Public Use
  Company Number: US-MERCK-1010USA00665

PATIENT
  Age: 62 Year
  Sex: Female

DRUGS (2)
  1. PREMPRO [Concomitant]
     Route: 065
     Dates: start: 19970101
  2. FOSAMAX [Suspect]
     Indication: OSTEOPOROSIS
     Route: 048
     Dates: start: 19950101, end: 20080101

REACTIONS (7)
  - FOOT FRACTURE [None]
  - FALL [None]
  - FEMUR FRACTURE [None]
  - LOW TURNOVER OSTEOPATHY [None]
  - RHEUMATOID ARTHRITIS [None]
  - PAIN IN EXTREMITY [None]
  - HYPOTHYROIDISM [None]
